FAERS Safety Report 13748896 (Version 1)
Quarter: 2017Q3

REPORT INFORMATION
  Report Type: Report from Study
  Country: CN (occurrence: CN)
  Receive Date: 20170713
  Receipt Date: 20170713
  Transmission Date: 20171127
  Serious: Yes (Death)
  Sender: FDA-Public Use
  Company Number: CN-ASTELLAS-2017US027222

PATIENT
  Age: 46 Year
  Sex: Male

DRUGS (3)
  1. ERLOTINIB [Suspect]
     Active Substance: ERLOTINIB
     Route: 048
  2. ERLOTINIB [Suspect]
     Active Substance: ERLOTINIB
     Indication: NON-SMALL CELL LUNG CANCER
     Route: 048
     Dates: start: 20150909, end: 20151026
  3. ERLOTINIB [Suspect]
     Active Substance: ERLOTINIB
     Dosage: 150 MG TWICE EVERY 3 DAYS
     Route: 048
     Dates: start: 20151026

REACTIONS (3)
  - Platelet count decreased [Fatal]
  - Rash [Recovering/Resolving]
  - Rash [Unknown]

NARRATIVE: CASE EVENT DATE: 20150909
